FAERS Safety Report 7680349-X (Version None)
Quarter: 2011Q3

REPORT INFORMATION
  Report Type: 
  Country: None (occurrence: None)
  Receive Date: 20110812
  Receipt Date: 20110811
  Transmission Date: 20111222
  Serious: Yes (Hospitalization)
  Sender: FDA-Public Use
  Company Number: ES-GLAXOSMITHKLINE-B0729068A

PATIENT
  Age: 22 Year
  Sex: Female

DRUGS (1)
  1. ACYCLOVIR [Suspect]
     Indication: VARICELLA
     Route: 048

REACTIONS (4)
  - DELUSION OF GRANDEUR [None]
  - PSYCHOTIC DISORDER [None]
  - MANIA [None]
  - IRRITABILITY [None]
